FAERS Safety Report 10912727 (Version 1)
Quarter: 2015Q1

REPORT INFORMATION
  Report Type: Spontaneous
  Country: US (occurrence: None)
  Receive Date: 20150310
  Receipt Date: 20150310
  Transmission Date: 20150721
  Serious: Yes (Other)
  Sender: FDA-Public Use
  Company Number: RAP-0012-2015

PATIENT
  Sex: Male
  Weight: 55.34 kg

DRUGS (1)
  1. PROCYSBI DELAYED-RELEASE [Suspect]
     Active Substance: CYSTEAMINE BITARTRATE
     Indication: CYSTINOSIS
     Dosage: 1800 MG (900 MG, 1 IN 12 HR), PER ORAL
     Route: 048

REACTIONS (1)
  - Renal transplant [None]
